FAERS Safety Report 24086104 (Version 2)
Quarter: 2024Q3

REPORT INFORMATION
  Report Type: Spontaneous
  Country: CA (occurrence: CA)
  Receive Date: 20240712
  Receipt Date: 20240905
  Transmission Date: 20241016
  Serious: Yes (Other)
  Sender: PFIZER
  Company Number: CA-PFIZER INC-202300322196

PATIENT
  Age: 52 Year
  Sex: Male

DRUGS (13)
  1. SOMATROPIN [Suspect]
     Active Substance: SOMATROPIN
     Indication: Growth hormone deficiency
     Dosage: 300 UG, 7 TIMES PER WEEK
     Route: 058
     Dates: start: 20230617, end: 202308
  2. PANTOPRAZOLE [Concomitant]
     Active Substance: PANTOPRAZOLE
  3. ACETAMINOPHEN\OXYCODONE HYDROCHLORIDE [Concomitant]
     Active Substance: ACETAMINOPHEN\OXYCODONE HYDROCHLORIDE
  4. TESTOSTERONE [Concomitant]
     Active Substance: TESTOSTERONE
  5. ZOLPIDEM [Concomitant]
     Active Substance: ZOLPIDEM TARTRATE
  6. CORTEF ACETATE [Concomitant]
     Active Substance: HYDROCORTISONE ACETATE
  7. PREDNISONE [Concomitant]
     Active Substance: PREDNISONE
  8. ZOPICLONE [Concomitant]
     Active Substance: ZOPICLONE
  9. OZEMPIC [Concomitant]
     Active Substance: SEMAGLUTIDE
  10. PERINDOPRIL [Concomitant]
     Active Substance: PERINDOPRIL
  11. ASPIRIN [Concomitant]
     Active Substance: ASPIRIN
     Dosage: 81 MG
  12. ALLOPURINOL [Concomitant]
     Active Substance: ALLOPURINOL
  13. SYNTHROID [Concomitant]
     Active Substance: LEVOTHYROXINE SODIUM

REACTIONS (2)
  - Brain neoplasm [Unknown]
  - Cerebral disorder [Unknown]

NARRATIVE: CASE EVENT DATE: 20230101
